FAERS Safety Report 9093950 (Version 1)
Quarter: 2013Q1

REPORT INFORMATION
  Report Type: Spontaneous
  Country: US (occurrence: None)
  Receive Date: 20130122
  Receipt Date: 20130122
  Transmission Date: 20140127
  Serious: Yes (Death)
  Sender: FDA-Public Use
  Company Number: 2013POI077000001

PATIENT
  Age: 32 Year
  Sex: Male

DRUGS (3)
  1. ZIPSOR [Suspect]
     Dates: end: 2011
  2. FENTANYL [Suspect]
     Dates: end: 2011
  3. ETHANOL [Suspect]

REACTIONS (2)
  - Cardiac arrest [None]
  - Respiratory arrest [None]
